FAERS Safety Report 4636746-X (Version None)
Quarter: 2005Q2

REPORT INFORMATION
  Report Type: 
  Country: None (occurrence: None)
  Receive Date: 20050414
  Receipt Date: 20050401
  Transmission Date: 20051028
  Serious: Yes (Death, Life-Threatening, Other)
  Sender: FDA-Public Use
  Company Number: 2005044811

PATIENT
  Age: 1 Day
  Sex: Male
  Weight: 3.8 kg

DRUGS (2)
  1. FOSPHENYTOIN SODIUM [Suspect]
     Indication: CONVULSION
     Dosage: INTRAVENOUS
     Route: 042
     Dates: start: 20041225, end: 20041225
  2. PHENOBARBITAL TAB [Concomitant]

REACTIONS (21)
  - ACCIDENTAL OVERDOSE [None]
  - ADRENAL DISORDER [None]
  - CARDIAC DISORDER [None]
  - CARDIO-RESPIRATORY ARREST NEONATAL [None]
  - CEREBRAL HAEMORRHAGE NEONATAL [None]
  - CHOLESTASIS [None]
  - CONVULSION NEONATAL [None]
  - GLOMERULOSCLEROSIS [None]
  - HEPATIC STEATOSIS [None]
  - HEPATOCELLULAR DAMAGE [None]
  - HYPERAEMIA [None]
  - INCREASED BRONCHIAL SECRETION [None]
  - NEONATAL ANOXIA [None]
  - NEONATAL ASPIRATION [None]
  - POST PROCEDURAL COMPLICATION [None]
  - RENAL DISORDER [None]
  - RENAL TUBULAR NECROSIS [None]
  - SKIN HAEMORRHAGE [None]
  - SPLEEN DISORDER [None]
  - THYMUS DISORDER [None]
  - UTERINE DISORDER [None]
